FAERS Safety Report 7307445-0 (Version None)
Quarter: 2011Q1

REPORT INFORMATION
  Report Type: 
  Country: None (occurrence: None)
  Receive Date: 20110209
  Receipt Date: 20110124
  Transmission Date: 20110831
  Serious: Yes (Other)
  Sender: FDA-Public Use
  Company Number: 011361

PATIENT
  Sex: Female
  Weight: 63 kg

DRUGS (3)
  1. CALCIUM D3 /00944201/ [Concomitant]
  2. CERTOLIZUMAB PEGOL (CERTOLIZUMAB PEGOL) [Suspect]
     Indication: RHEUMATOID ARTHRITIS
     Dosage: (SUBCUTANEOUS)
     Route: 058
     Dates: start: 20100201, end: 20100426
  3. OMEPRAZOLE [Concomitant]

REACTIONS (2)
  - PUSTULAR PSORIASIS [None]
  - PRURITUS GENERALISED [None]
